FAERS Safety Report 7341758-1 (Version None)
Quarter: 2011Q1

REPORT INFORMATION
  Report Type: 
  Country: None (occurrence: None)
  Receive Date: 20110309
  Receipt Date: 20110309
  Transmission Date: 20110831
  Serious: Yes (Other)
  Sender: FDA-Public Use
  Company Number: JP-B.I. PHARMACEUTICALS,INC./RIDGEFIELD-2011-BP-00679NB

PATIENT
  Sex: Male

DRUGS (1)
  1. BI-SIFROL TABLETS [Suspect]
     Indication: RESTLESS LEGS SYNDROME
     Dosage: 0.125 MG
     Route: 048
     Dates: start: 20101001

REACTIONS (1)
  - INTERSTITIAL LUNG DISEASE [None]
